FAERS Safety Report 12311809 (Version 1)
Quarter: 2016Q2

REPORT INFORMATION
  Report Type: Spontaneous
  Country: IT (occurrence: IT)
  Receive Date: 20160427
  Receipt Date: 20160427
  Transmission Date: 20160815
  Serious: Yes (Other)
  Sender: FDA-Public Use
  Company Number: IT-PFIZER INC-2016228753

PATIENT
  Age: 53 Year
  Sex: Male

DRUGS (9)
  1. METHADONE HYDROCHLORIDE. [Suspect]
     Active Substance: METHADONE HYDROCHLORIDE
     Dosage: 275 MG, DAILY
     Route: 048
     Dates: start: 20160121
  2. TAVOR (LORAZEPAM) [Suspect]
     Active Substance: LORAZEPAM
     Indication: DRUG DEPENDENCE
     Dosage: 2.5 MG, DAILY
     Route: 048
     Dates: start: 20160404
  3. CARDURA [Concomitant]
     Active Substance: DOXAZOSIN MESYLATE
     Dosage: 2 MG, UNK
     Route: 048
  4. NORVASC [Concomitant]
     Active Substance: AMLODIPINE BESYLATE
     Dosage: 10 MG, UNK
     Route: 048
     Dates: start: 20140101, end: 20160421
  5. TAREG [Concomitant]
     Active Substance: VALSARTAN
     Dosage: 80 MG, UNK
     Route: 048
     Dates: start: 20140101, end: 20160421
  6. OMEPRAZOLE. [Concomitant]
     Active Substance: OMEPRAZOLE
     Dosage: 20 MG, UNK
     Route: 048
  7. AMIKACIN [Concomitant]
     Active Substance: AMIKACIN
     Dosage: 3 DF, UNK
     Route: 042
  8. NEURONTIN [Suspect]
     Active Substance: GABAPENTIN
     Indication: DRUG DEPENDENCE
     Dosage: 300 MG, DAILY
     Route: 048
     Dates: start: 20160404
  9. EUTIROX [Concomitant]
     Active Substance: LEVOTHYROXINE SODIUM
     Dosage: 25 UG, UNK
     Route: 048

REACTIONS (16)
  - Vertigo [Not Recovered/Not Resolved]
  - Headache [Not Recovered/Not Resolved]
  - Sexual dysfunction [Not Recovered/Not Resolved]
  - Somnolence [Not Recovered/Not Resolved]
  - Tremor [Not Recovered/Not Resolved]
  - Dry mouth [Not Recovered/Not Resolved]
  - Decreased appetite [Not Recovered/Not Resolved]
  - Agitation [Not Recovered/Not Resolved]
  - Dysgeusia [Not Recovered/Not Resolved]
  - Nausea [Not Recovered/Not Resolved]
  - Nocturia [Not Recovered/Not Resolved]
  - Constipation [Not Recovered/Not Resolved]
  - Asthenia [Not Recovered/Not Resolved]
  - Paraesthesia [Not Recovered/Not Resolved]
  - Insomnia [Not Recovered/Not Resolved]
  - Orthostatic hypotension [Not Recovered/Not Resolved]

NARRATIVE: CASE EVENT DATE: 20160404
